FAERS Safety Report 18486577 (Version 2)
Quarter: 2021Q2

REPORT INFORMATION
  Report Type: Spontaneous
  Country: US (occurrence: US)
  Receive Date: 20201110
  Receipt Date: 20210526
  Transmission Date: 20210717
  Serious: No
  Sender: FDA-Public Use
  Company Number: US-PFIZER INC-2020432880

PATIENT
  Age: 65 Year
  Sex: Female
  Weight: 86.18 kg

DRUGS (4)
  1. PREMARIN [Suspect]
     Active Substance: ESTROGENS, CONJUGATED
     Indication: BONE LOSS
  2. OSCAL [CALCIUM CARBONATE] [Concomitant]
     Dosage: 500 MG, 3X/DAY
  3. VITAMIN D [Concomitant]
     Active Substance: VITAMIN D NOS
     Dosage: UNK
  4. PREMARIN [Suspect]
     Active Substance: ESTROGENS, CONJUGATED
     Indication: MENOPAUSE
     Dosage: 0.45 MG, 1X/DAY (0.45 ONCE DAILY BY MOUTH/ONE TIME A DAY)
     Route: 048
     Dates: start: 2005

REACTIONS (3)
  - Memory impairment [Unknown]
  - Arthralgia [Unknown]
  - Intentional product misuse [Unknown]
